FAERS Safety Report 8747219 (Version 2)
Quarter: 2012Q4

REPORT INFORMATION
  Report Type: 
  Country: US (occurrence: US)
  Receive Date: 20120827
  Receipt Date: 20120927
  Transmission Date: 20130627
  Serious: Yes (Other)
  Sender: FDA-Public Use
  Company Number: US-JNJFOC-20120810943

PATIENT
  Age: 9 None
  Sex: Female

DRUGS (4)
  1. REMICADE [Suspect]
     Indication: RHEUMATOID ARTHRITIS
     Route: 042
     Dates: start: 20031031, end: 20120717
  2. METHOTREXATE [Concomitant]
     Route: 065
     Dates: start: 19950111, end: 201203
  3. SULFASALAZINE [Concomitant]
     Route: 065
  4. PREDNISONE [Concomitant]
     Route: 065
     Dates: start: 1998, end: 2002

REACTIONS (1)
  - Brain neoplasm [Unknown]
